FAERS Safety Report 21796506 (Version 1)
Quarter: 2022Q4

REPORT INFORMATION
  Report Type: Spontaneous
  Country: US (occurrence: US)
  Receive Date: 20221229
  Receipt Date: 20221229
  Transmission Date: 20230113
  Serious: Yes (Other)
  Sender: FDA-Public Use
  Company Number: US-BEH-2022153626

PATIENT
  Age: 3 Year
  Sex: Female

DRUGS (15)
  1. HIZENTRA [Suspect]
     Active Substance: HUMAN IMMUNOGLOBULIN G
     Indication: Hypogammaglobulinaemia
     Dosage: 3 GRAM, QOW
     Route: 058
     Dates: start: 20220719
  2. AMLODIPINE [Concomitant]
     Active Substance: AMLODIPINE BESYLATE
  3. ATROVENT HFA [Concomitant]
     Active Substance: IPRATROPIUM BROMIDE
  4. EPINEPHRINE [Concomitant]
     Active Substance: EPINEPHRINE
  5. FAMOTIDINE [Concomitant]
     Active Substance: FAMOTIDINE
  6. FLUCONAZOLE [Concomitant]
     Active Substance: FLUCONAZOLE
  7. LASIX [Concomitant]
     Active Substance: FUROSEMIDE
  8. LIDOCAINE AND PRILOCAINE [Concomitant]
     Active Substance: LIDOCAINE\PRILOCAINE
  9. MILK OF MAGNESIA [Concomitant]
     Active Substance: MAGNESIUM HYDROXIDE
  10. MYCOPHENOLIC ACID [Concomitant]
     Active Substance: MYCOPHENOLIC ACID
  11. PENTAMIDINE [Concomitant]
     Active Substance: PENTAMIDINE
  12. PREDNISOLONE [Concomitant]
     Active Substance: PREDNISOLONE
  13. TACROLIMUS [Concomitant]
     Active Substance: TACROLIMUS
  14. INFANTS TYLENOL [Concomitant]
     Active Substance: ACETAMINOPHEN
  15. ZYRTEC [Concomitant]
     Active Substance: CETIRIZINE HYDROCHLORIDE

REACTIONS (1)
  - Pneumonia [Recovered/Resolved]

NARRATIVE: CASE EVENT DATE: 20221201
